FAERS Safety Report 8382183-4 (Version None)
Quarter: 2012Q2

REPORT INFORMATION
  Report Type: 
  Country: None (occurrence: None)
  Receive Date: 20120511
  Receipt Date: 20120502
  Transmission Date: 20120825
  Serious: Yes (Hospitalization)
  Sender: FDA-Public Use
  Company Number: AEUSA201200237

PATIENT
  Age: 40 Year
  Sex: Female
  Weight: 53.5244 kg

DRUGS (14)
  1. GAMUNEX [Suspect]
     Indication: IMMUNODEFICIENCY COMMON VARIABLE
     Dosage: 400 MG/KG;1X;IV
     Route: 042
     Dates: start: 20120418, end: 20120418
  2. BENADRYL [Concomitant]
  3. TOPAMAX [Concomitant]
  4. SINGULAIR /01362602/ [Concomitant]
  5. NASACORT [Concomitant]
  6. ESTRATEST [Concomitant]
  7. ALPRAZOLAM [Concomitant]
  8. QVAR 40 [Concomitant]
  9. ALBUTEROL [Concomitant]
  10. PEPCID [Concomitant]
  11. PREDNISONE TAB [Concomitant]
  12. TYLENOL (CAPLET) [Concomitant]
  13. VITAMIN D [Concomitant]
  14. IMITREX /01048801/ [Concomitant]

REACTIONS (17)
  - WHEEZING [None]
  - HEADACHE [None]
  - CHILLS [None]
  - SNEEZING [None]
  - CHEST DISCOMFORT [None]
  - EYE SWELLING [None]
  - DIZZINESS [None]
  - SPUTUM DISCOLOURED [None]
  - FLUID OVERLOAD [None]
  - RESPIRATORY RATE INCREASED [None]
  - PYREXIA [None]
  - CONTUSION [None]
  - OROPHARYNGEAL PAIN [None]
  - FLUSHING [None]
  - PRODUCTIVE COUGH [None]
  - SPUTUM INCREASED [None]
  - DYSPNOEA [None]
